FAERS Safety Report 6150992-8 (Version None)
Quarter: 2009Q2

REPORT INFORMATION
  Report Type: 
  Country: None (occurrence: None)
  Receive Date: 20090410
  Receipt Date: 20090203
  Transmission Date: 20091009
  Serious: No
  Sender: FDA-Public Use
  Company Number: A0766340A

PATIENT
  Age: 65 Year
  Sex: Female

DRUGS (5)
  1. TYKERB [Suspect]
     Indication: BREAST CANCER
     Dosage: 4TAB PER DAY
     Route: 048
     Dates: start: 20090128
  2. TAMOXIFEN CITRATE [Concomitant]
  3. ABILIFY [Concomitant]
  4. COREG [Concomitant]
  5. DEXAMETHASONE 4MG TAB [Concomitant]

REACTIONS (2)
  - FLATULENCE [None]
  - HEADACHE [None]
